FAERS Safety Report 13651589 (Version 1)
Quarter: 2017Q2

REPORT INFORMATION
  Report Type: Spontaneous
  Country: US (occurrence: US)
  Receive Date: 20170614
  Receipt Date: 20170614
  Transmission Date: 20170830
  Serious: No
  Sender: FDA-Public Use
  Company Number: US-ASTRAZENECA-2017SE61625

PATIENT
  Sex: Female

DRUGS (2)
  1. MOVANTIK [Suspect]
     Active Substance: NALOXEGOL OXALATE
     Indication: CONSTIPATION
     Route: 048
     Dates: start: 201701
  2. OXYCODONE [Concomitant]
     Active Substance: OXYCODONE
     Dosage: UNKNOWN
     Route: 065

REACTIONS (3)
  - Feeling abnormal [Unknown]
  - Abdominal pain [Unknown]
  - Blood brain barrier defect [Unknown]
